FAERS Safety Report 4494350-0 (Version None)
Quarter: 2004Q4

REPORT INFORMATION
  Report Type: 
  Country: None (occurrence: None)
  Receive Date: 20041105
  Receipt Date: 20041012
  Transmission Date: 20050328
  Serious: Yes (Hospitalization, Other)
  Sender: FDA-Public Use
  Company Number: PHBS2004JP13599

PATIENT
  Age: 76 Year
  Sex: Male
  Weight: 64 kg

DRUGS (4)
  1. DIOVAN [Suspect]
     Dosage: 80 MG, QD
     Route: 048
     Dates: start: 20030404, end: 20040902
  2. MUCOSOLVON [Concomitant]
     Indication: COUGH
     Dosage: 15 MG, TID
     Route: 048
     Dates: start: 20031017, end: 20040902
  3. CEPHADOL [Concomitant]
     Indication: DIZZINESS
     Dosage: 25 MG, TID
     Route: 048
     Dates: start: 20040201, end: 20040902
  4. KETAS [Concomitant]
     Indication: DIZZINESS
     Dosage: 10 MG, BID
     Route: 048
     Dates: start: 20040201, end: 20040402

REACTIONS (3)
  - DIZZINESS [None]
  - LICHEN PLANUS [None]
  - RASH [None]
